FAERS Safety Report 20724195 (Version 1)
Quarter: 2022Q2

REPORT INFORMATION
  Report Type: Spontaneous
  Country: KR (occurrence: KR)
  Receive Date: 20220419
  Receipt Date: 20220419
  Transmission Date: 20220721
  Serious: Yes (Other)
  Sender: FDA-Public Use
  Company Number: KR-GILEAD-2022-0578099

PATIENT
  Age: 74 Year
  Sex: Male

DRUGS (1)
  1. VIREAD [Suspect]
     Active Substance: TENOFOVIR DISOPROXIL FUMARATE
     Indication: Hepatitis B
     Dosage: 1 DOSAGE FORM, QD
     Route: 065
     Dates: start: 2012

REACTIONS (2)
  - Osteoporosis [Not Recovered/Not Resolved]
  - Arthralgia [Not Recovered/Not Resolved]
